FAERS Safety Report 4745916-1 (Version None)
Quarter: 2005Q3

REPORT INFORMATION
  Report Type: 
  Country: None (occurrence: None)
  Receive Date: 20050816
  Receipt Date: 20050721
  Transmission Date: 20060218
  Serious: Yes (Hospitalization)
  Sender: FDA-Public Use
  Company Number: US-GLAXOSMITHKLINE-A0567179A

PATIENT
  Age: 72 Year
  Sex: Female

DRUGS (12)
  1. AVANDIA [Suspect]
     Dosage: 8MG PER DAY
     Route: 048
     Dates: start: 20030101
  2. FOSAMAX [Concomitant]
  3. TOPROL-XL [Concomitant]
  4. HUMULIN [Concomitant]
  5. AVAPRO [Concomitant]
  6. DOXAZOSIN [Concomitant]
  7. FUROSEMIDE [Concomitant]
  8. GABAPENTIN [Concomitant]
  9. LEVOTHYROXINE [Concomitant]
  10. LIPITOR [Concomitant]
  11. NIFEDIPINE [Concomitant]
  12. ASPIRIN [Concomitant]

REACTIONS (7)
  - ALBUMINURIA [None]
  - ANAEMIA [None]
  - FRACTURE [None]
  - HYPERHIDROSIS [None]
  - HYPOGLYCAEMIA [None]
  - RENAL DISORDER [None]
  - WHITE BLOOD CELL COUNT DECREASED [None]
